FAERS Safety Report 12699508 (Version 1)
Quarter: 2016Q3

REPORT INFORMATION
  Report Type: Spontaneous
  Country: US (occurrence: US)
  Receive Date: 20160830
  Receipt Date: 20160830
  Transmission Date: 20161109
  Serious: No
  Sender: FDA-Public Use
  Company Number: US-SUPERNUS PHARMACEUTICALS, INC.-2016SUP00138

PATIENT
  Sex: Female
  Weight: 144.67 kg

DRUGS (4)
  1. TROKENDI XR [Suspect]
     Active Substance: TOPIRAMATE
     Indication: MIGRAINE
     Dosage: 1X/DAY
     Route: 048
     Dates: start: 20160307, end: 201605
  2. ONE A DAY ADULT MULTIVITAMIN 1 TABLET [Concomitant]
     Dosage: 1 TABLET 1X/DAY
  3. QUDEXY XR [Suspect]
     Active Substance: TOPIRAMATE
     Indication: MIGRAINE
     Dosage: UNK
     Route: 048
     Dates: start: 201606
  4. TROKENDI XR [Suspect]
     Active Substance: TOPIRAMATE
     Dosage: 1X/DAY
     Route: 048
     Dates: start: 201605, end: 201606

REACTIONS (5)
  - Off label use [Unknown]
  - Tongue coated [Not Recovered/Not Resolved]
  - Syncope [Recovered/Resolved]
  - Paraesthesia oral [Not Recovered/Not Resolved]
  - Paraesthesia [Not Recovered/Not Resolved]

NARRATIVE: CASE EVENT DATE: 2016
